FAERS Safety Report 8847222 (Version 1)
Quarter: 2012Q4

REPORT INFORMATION
  Report Type: Spontaneous
  Country: US (occurrence: None)
  Receive Date: 20121017
  Receipt Date: 20121017
  Transmission Date: 20130627
  Serious: No
  Sender: FDA-Public Use
  Company Number: None

PATIENT
  Sex: Male
  Weight: 24.04 kg

DRUGS (1)
  1. MONTELUKAST [Suspect]
     Dosage: 5mg chew. q day po
     Route: 048
     Dates: start: 201208

REACTIONS (2)
  - Drug ineffective [None]
  - Product substitution issue [None]
